FAERS Safety Report 8858335 (Version 1)
Quarter: 2012Q4

REPORT INFORMATION
  Report Type: 
  Country: US (occurrence: US)
  Receive Date: 20121024
  Receipt Date: 20121024
  Transmission Date: 20130627
  Serious: No
  Sender: FDA-Public Use
  Company Number: US-AMGEN-USASP2011062721

PATIENT
  Sex: Female

DRUGS (15)
  1. ENBREL [Suspect]
     Indication: PRODUCT USED FOR UNKNOWN INDICATION
     Dosage: 50 mg, qwk
     Route: 058
  2. SINGULAIR [Concomitant]
     Dosage: 4 mg, UNK
  3. COREG [Concomitant]
     Dosage: 25 mg, UNK
  4. PLAQUENIL                          /00072602/ [Concomitant]
     Dosage: 200 mg, UNK
  5. CELEBREX [Concomitant]
     Dosage: 400 mg, UNK
  6. PREMARIN [Concomitant]
     Dosage: 0.45 mg, UNK
  7. METHOTREXATE [Concomitant]
     Dosage: 2.5 mg, UNK
  8. PREDNISONE [Concomitant]
     Dosage: 1 mg, UNK
  9. ULTRAM ER [Concomitant]
     Dosage: 200 mg, UNK
  10. FOLIC ACID [Concomitant]
     Dosage: 1 mg, UNK
  11. MICARDIS HCT [Concomitant]
  12. CALCIUM [Concomitant]
  13. MULTICAPS [Concomitant]
  14. SULAR [Concomitant]
     Dosage: 17 mg, UNK
  15. SULFASALAZIN [Concomitant]
     Dosage: 500 mg, UNK

REACTIONS (1)
  - White blood cell count abnormal [Recovered/Resolved]
